FAERS Safety Report 17737138 (Version 1)
Quarter: 2020Q2

REPORT INFORMATION
  Report Type: Spontaneous
  Country: FR (occurrence: FR)
  Receive Date: 20200502
  Receipt Date: 20200502
  Transmission Date: 20200714
  Serious: Yes (Other)
  Sender: FDA-Public Use
  Company Number: FR-TEVA-2020-FR-1228538

PATIENT
  Age: 73 Year
  Sex: Male

DRUGS (2)
  1. RABEPRAZOLE BASE [Suspect]
     Active Substance: RABEPRAZOLE
     Indication: ABDOMINAL PAIN UPPER
     Dosage: ON DEMAND
     Route: 048
     Dates: start: 20200316
  2. ROXITHROMYCINE [Suspect]
     Active Substance: ROXITHROMYCIN
     Indication: PNEUMONIA
     Dosage: NOT SPECIFIED
     Route: 048
     Dates: start: 20200215, end: 20200224

REACTIONS (1)
  - Neutropenia [Recovering/Resolving]

NARRATIVE: CASE EVENT DATE: 20200330
